FAERS Safety Report 9681262 (Version 1)
Quarter: 2013Q4

REPORT INFORMATION
  Report Type: Spontaneous
  Country: CZ (occurrence: CZ)
  Receive Date: 20131111
  Receipt Date: 20131111
  Transmission Date: 20140711
  Serious: Yes (Death)
  Sender: FDA-Public Use
  Company Number: CZ-CELGENEUS-217-21660-13105314

PATIENT
  Age: 53 Year
  Sex: Female

DRUGS (1)
  1. ABRAXANE [Suspect]
     Indication: BREAST CANCER METASTATIC
     Route: 041

REACTIONS (6)
  - Death [Fatal]
  - Eye swelling [Unknown]
  - Breast cancer metastatic [Unknown]
  - Vomiting [Unknown]
  - Erythema [Unknown]
  - Pruritus [Unknown]
